FAERS Safety Report 6657741-5 (Version None)
Quarter: 2010Q1

REPORT INFORMATION
  Report Type: 
  Country: None (occurrence: None)
  Receive Date: 20100330
  Receipt Date: 20090713
  Transmission Date: 20100710
  Serious: Yes (Death)
  Sender: FDA-Public Use
  Company Number: US-TYCO HEALTHCARE/MALLINCKRODT-T200901356

PATIENT
  Sex: Male

DRUGS (2)
  1. METHADOSE [Suspect]
  2. HYDROMORPHONE HCL [Suspect]

REACTIONS (1)
  - MULTIPLE DRUG OVERDOSE [None]
